FAERS Safety Report 9536630 (Version 1)
Quarter: 2013Q2

REPORT INFORMATION
  Report Type: Spontaneous
  Country: US (occurrence: None)
  Receive Date: 20130507
  Receipt Date: 20130507
  Transmission Date: 20140414
  Serious: No
  Sender: FDA-Public Use
  Company Number: PHEH2012US019315

PATIENT
  Age: 7 Year
  Sex: Male

DRUGS (1)
  1. AFINITOR [Suspect]
     Indication: TUBEROUS SCLEROSIS
     Route: 048
     Dates: start: 20120329

REACTIONS (6)
  - Pain in extremity [None]
  - Skin papilloma [None]
  - Nasal congestion [None]
  - Nasopharyngitis [None]
  - Rhinorrhoea [None]
  - Cough [None]
